FAERS Safety Report 19157111 (Version 3)
Quarter: 2021Q2

REPORT INFORMATION
  Report Type: Spontaneous
  Country: PT (occurrence: PT)
  Receive Date: 20210420
  Receipt Date: 20210529
  Transmission Date: 20210717
  Serious: Yes (Other)
  Sender: FDA-Public Use
  Company Number: PT-ROCHE-2810755

PATIENT
  Age: 67 Year
  Sex: Male

DRUGS (1)
  1. ATEZOLIZUMAB. [Suspect]
     Active Substance: ATEZOLIZUMAB
     Indication: SQUAMOUS CELL CARCINOMA
     Dosage: VIAL FOR INJECTIONS, CONCENTRATE FOR SOLUTION FOR INFUSION, 60 MG/ML?30/MAR/2020 AND 02/JUN/2020, MO
     Route: 041
     Dates: start: 201912

REACTIONS (3)
  - Pneumonitis [Recovered/Resolved]
  - Metastatic neoplasm [Unknown]
  - Neoplasm [Unknown]

NARRATIVE: CASE EVENT DATE: 20200420
